FAERS Safety Report 6698185-X (Version None)
Quarter: 2010Q2

REPORT INFORMATION
  Report Type: 
  Country: None (occurrence: None)
  Receive Date: 20100427
  Receipt Date: 20100414
  Transmission Date: 20101027
  Serious: Yes (Life-Threatening, Hospitalization)
  Sender: FDA-Public Use
  Company Number: JP-AMGEN-US298914

PATIENT
  Sex: Female
  Weight: 49 kg

DRUGS (8)
  1. ENBREL [Suspect]
     Indication: RHEUMATOID ARTHRITIS
     Route: 058
     Dates: start: 20080205, end: 20080225
  2. SELBEX [Concomitant]
     Route: 048
  3. PARIET [Concomitant]
     Route: 048
  4. PAXIL [Concomitant]
     Route: 048
  5. BENET [Concomitant]
     Route: 048
  6. PREDNISOLONE [Concomitant]
     Indication: RHEUMATOID ARTHRITIS
     Route: 048
  7. PREDNISOLONE [Concomitant]
  8. ALFAROL [Concomitant]
     Route: 048

REACTIONS (2)
  - BONE MARROW FAILURE [None]
  - MEASLES [None]
